FAERS Safety Report 6477815-1 (Version None)
Quarter: 2009Q4

REPORT INFORMATION
  Report Type: 
  Country: None (occurrence: None)
  Receive Date: 20091207
  Receipt Date: 20091126
  Transmission Date: 20100525
  Serious: Yes (Death)
  Sender: FDA-Public Use
  Company Number: JP-PFIZER INC-2009300228

PATIENT
  Age: 60 Year
  Sex: Male

DRUGS (2)
  1. CELECOX [Suspect]
     Indication: ARTHRALGIA
     Dosage: 100 MG/DAY
     Route: 048
     Dates: end: 20091104
  2. ROHYPNOL [Concomitant]
     Route: 048

REACTIONS (1)
  - CARDIO-RESPIRATORY ARREST [None]
